FAERS Safety Report 9143715 (Version 3)
Quarter: 2013Q1

REPORT INFORMATION
  Report Type: Spontaneous
  Country: BE (occurrence: BE)
  Receive Date: 20130306
  Receipt Date: 20130313
  Transmission Date: 20140127
  Serious: Yes (Death)
  Sender: FDA-Public Use
  Company Number: BE-ROCHE-1197755

PATIENT
  Age: 64 Year
  Sex: Male

DRUGS (2)
  1. LUCENTIS [Suspect]
     Indication: AGE-RELATED MACULAR DEGENERATION
     Route: 050
     Dates: start: 20090321
  2. LUCENTIS [Suspect]
     Route: 050
     Dates: start: 20120605, end: 20120605

REACTIONS (1)
  - Cerebrovascular accident [Fatal]
